FAERS Safety Report 11891720 (Version 1)
Quarter: 2016Q1

REPORT INFORMATION
  Report Type: Spontaneous
  Country: US (occurrence: None)
  Receive Date: 20160105
  Receipt Date: 20160105
  Transmission Date: 20160526
  Serious: Yes (Other)
  Sender: FDA-Public Use
  Company Number: None

PATIENT
  Age: 42 Year
  Sex: Female
  Weight: 81.65 kg

DRUGS (1)
  1. BELSOMRA [Suspect]
     Active Substance: SUVOREXANT
     Indication: INSOMNIA
     Dosage: 1 PILL AT NIGHT AT BEDTIME TAKEN BY MOUTH
     Route: 048

REACTIONS (6)
  - Dysstasia [None]
  - Abdominal pain lower [None]
  - Drug ineffective [None]
  - Mood altered [None]
  - Back pain [None]
  - Discomfort [None]

NARRATIVE: CASE EVENT DATE: 20151118
